FAERS Safety Report 25431860 (Version 1)
Quarter: 2025Q2

REPORT INFORMATION
  Report Type: Spontaneous
  Country: US (occurrence: US)
  Receive Date: 20250613
  Receipt Date: 20250613
  Transmission Date: 20250717
  Serious: Yes (Life-Threatening, Hospitalization)
  Sender: CALIFORNIA DEPARTMENT OF PUBLIC HEALTH
  Company Number: US-California Department of Public Health-2178608

PATIENT
  Age: 3 Week
  Sex: Male
  Weight: 3.4 kg

DRUGS (1)
  1. BABYBIG [Suspect]
     Active Substance: HUMAN BOTULINUM NEUROTOXIN A/B IMMUNE GLOBULIN
     Indication: Botulism
     Dates: start: 20250309, end: 20250309

REACTIONS (3)
  - Cardio-respiratory arrest [Recovered/Resolved]
  - Atelectasis [Recovered/Resolved]
  - Cardio-respiratory arrest [Recovered/Resolved]

NARRATIVE: CASE EVENT DATE: 20250310
